FAERS Safety Report 20059530 (Version 1)
Quarter: 2021Q4

REPORT INFORMATION
  Report Type: Spontaneous
  Country: CH (occurrence: CH)
  Receive Date: 20211111
  Receipt Date: 20211111
  Transmission Date: 20220303
  Serious: Yes (Hospitalization, Other)
  Sender: FDA-Public Use
  Company Number: None

PATIENT
  Age: 81 Year
  Sex: Female

DRUGS (7)
  1. OLUMIANT [Suspect]
     Active Substance: BARICITINIB
     Indication: Dermatitis atopic
     Dosage: 2 MG, DAILY
     Route: 048
     Dates: start: 202105, end: 20211022
  2. ALDACTONE [Concomitant]
     Active Substance: SPIRONOLACTONE
     Dosage: 50 MG, UNKNOWN
     Route: 065
  3. PANTOZOL [Concomitant]
     Active Substance: PANTOPRAZOLE SODIUM
     Dosage: 40 MG, UNKNOWN
     Route: 065
  4. BISOPROLOL [Concomitant]
     Active Substance: BISOPROLOL
     Dosage: 2.5 MG, UNKNOWN
     Route: 065
  5. PHENPROCOUMON [Concomitant]
     Active Substance: PHENPROCOUMON
     Dosage: UNK, UNKNOWN
     Route: 065
  6. QUININE SULFATE [Concomitant]
     Active Substance: QUININE SULFATE
     Dosage: 250 MG, UNKNOWN
     Route: 065
  7. TILIDINE HYDROCHLORIDE [Concomitant]
     Active Substance: TILIDINE HYDROCHLORIDE
     Dosage: UNK, UNKNOWN
     Route: 065

REACTIONS (3)
  - Fall [Unknown]
  - Herpes zoster [Recovering/Resolving]
  - Urinary tract infection [Recovering/Resolving]

NARRATIVE: CASE EVENT DATE: 20211022
